FAERS Safety Report 5614015-9 (Version None)
Quarter: 2008Q1

REPORT INFORMATION
  Report Type: 
  Country: None (occurrence: None)
  Receive Date: 20080205
  Receipt Date: 20080130
  Transmission Date: 20080703
  Serious: Yes (Death)
  Sender: FDA-Public Use
  Company Number: US-GENENTECH-255180

PATIENT
  Age: 65 Year
  Sex: Male
  Weight: 70.023 kg

DRUGS (2)
  1. ERLOTINIB [Suspect]
     Indication: NON-SMALL CELL LUNG CANCER
     Dosage: 150 MG, UNKNOWN
     Route: 048
     Dates: start: 20070501
  2. BEVACIZUMAB [Suspect]
     Indication: NON-SMALL CELL LUNG CANCER
     Dosage: 1200 MG, UNKNOWN
     Route: 042
     Dates: start: 20070501

REACTIONS (1)
  - CARDIAC ARREST [None]
